FAERS Safety Report 6634093-8 (Version None)
Quarter: 2010Q1

REPORT INFORMATION
  Report Type: 
  Country: None (occurrence: None)
  Receive Date: 20100315
  Receipt Date: 20100305
  Transmission Date: 20100710
  Serious: Yes (Hospitalization)
  Sender: FDA-Public Use
  Company Number: BR-ASTRAZENECA-2010SE10043

PATIENT
  Age: 70 Year
  Sex: Female

DRUGS (3)
  1. ZESTORETIC [Suspect]
     Indication: HYPERTENSION
     Route: 048
     Dates: start: 20020101, end: 20020101
  2. ZESTORETIC [Suspect]
     Route: 048
     Dates: start: 20020101
  3. CALCIUM [Concomitant]
     Route: 048
     Dates: start: 20080101

REACTIONS (4)
  - FALL [None]
  - LAZINESS [None]
  - SOMNOLENCE [None]
  - UPPER LIMB FRACTURE [None]
